FAERS Safety Report 7375804-6 (Version None)
Quarter: 2011Q1

REPORT INFORMATION
  Report Type: 
  Country: None (occurrence: None)
  Receive Date: 20110325
  Receipt Date: 20110316
  Transmission Date: 20110831
  Serious: Yes (Hospitalization)
  Sender: FDA-Public Use
  Company Number: A0887212A

PATIENT
  Age: 70 Year
  Sex: Male
  Weight: 94.1 kg

DRUGS (5)
  1. LIPITOR [Concomitant]
  2. AVANDIA [Suspect]
     Dosage: 8MG PER DAY
     Route: 048
     Dates: start: 20030121, end: 20090903
  3. GLYBURIDE [Concomitant]
  4. METFORMIN HCL [Concomitant]
  5. INSULIN [Concomitant]

REACTIONS (6)
  - ISCHAEMIC CARDIOMYOPATHY [None]
  - MYOCARDIAL INFARCTION [None]
  - TRANSIENT ISCHAEMIC ATTACK [None]
  - CARDIAC FAILURE CONGESTIVE [None]
  - CEREBROVASCULAR ACCIDENT [None]
  - IMPLANTABLE DEFIBRILLATOR INSERTION [None]
